FAERS Safety Report 15378759 (Version 1)
Quarter: 2018Q3

REPORT INFORMATION
  Report Type: Spontaneous
  Country: BR (occurrence: BR)
  Receive Date: 20180913
  Receipt Date: 20180913
  Transmission Date: 20181010
  Serious: Yes (Life-Threatening, Other)
  Sender: FDA-Public Use
  Company Number: BR-GLAXOSMITHKLINE-BR2018GSK163324

PATIENT
  Age: 6 Year
  Sex: Male

DRUGS (1)
  1. ZINNAT [Suspect]
     Active Substance: CEFUROXIME AXETIL
     Indication: SINUSITIS
     Dosage: UNK, BID
     Route: 048
     Dates: start: 20180824

REACTIONS (6)
  - Rash erythematous [Unknown]
  - Adverse drug reaction [Unknown]
  - Swelling [Unknown]
  - Eye haemorrhage [Unknown]
  - Retinal artery occlusion [Unknown]
  - Ill-defined disorder [Unknown]
